FAERS Safety Report 5024207-8 (Version None)
Quarter: 2006Q2

REPORT INFORMATION
  Report Type: 
  Country: None (occurrence: None)
  Receive Date: 20060613
  Receipt Date: 20060302
  Transmission Date: 20061013
  Serious: Yes (Other)
  Sender: FDA-Public Use
  Company Number: PHNU2006DE01220

PATIENT
  Sex: Male

DRUGS (2)
  1. CO-DIOVAN [Suspect]
     Indication: HYPERTENSION
     Dates: start: 20060101
  2. LITHIUM CARBONATE [Concomitant]

REACTIONS (5)
  - CONJUNCTIVAL HYPERAEMIA [None]
  - PARESIS [None]
  - SPINAL COLUMN STENOSIS [None]
  - SPINAL OPERATION [None]
  - VISUAL DISTURBANCE [None]
